FAERS Safety Report 17557292 (Version 1)
Quarter: 2020Q1

REPORT INFORMATION
  Report Type: Spontaneous
  Country: US (occurrence: US)
  Receive Date: 20200318
  Receipt Date: 20200318
  Transmission Date: 20200409
  Serious: No
  Sender: FDA-Public Use
  Company Number: US-GLOBAL BLOOD THERAPEUTICS INC-US-GBT-20-00107

PATIENT
  Sex: Male

DRUGS (1)
  1. OXBRYTA [Suspect]
     Active Substance: VOXELOTOR
     Indication: AMERICAN TRYPANOSOMIASIS
     Route: 048

REACTIONS (4)
  - Nausea [Unknown]
  - Diarrhoea [Unknown]
  - Muscle spasms [Unknown]
  - Off label use [Unknown]
